FAERS Safety Report 7491839-7 (Version None)
Quarter: 2011Q2

REPORT INFORMATION
  Report Type: 
  Country: None (occurrence: None)
  Receive Date: 20110519
  Receipt Date: 20110512
  Transmission Date: 20111010
  Serious: Yes (Other)
  Sender: FDA-Public Use
  Company Number: BR-BRISTOL-MYERS SQUIBB COMPANY-15746597

PATIENT
  Age: 82 Year
  Sex: Female

DRUGS (1)
  1. IRBESARTAN [Suspect]
     Indication: HYPERTENSION
     Dosage: ALSO TOOK MEDICATION 10 YEARS AGO, INTERRUPTED AND RESTARTED ON MAY2011

REACTIONS (6)
  - FALL [None]
  - OEDEMA PERIPHERAL [None]
  - FEMUR FRACTURE [None]
  - GASTRITIS [None]
  - HEADACHE [None]
  - NERVOUSNESS [None]
